FAERS Safety Report 12485042 (Version 3)
Quarter: 2016Q3

REPORT INFORMATION
  Report Type: Spontaneous
  Country: US (occurrence: US)
  Receive Date: 20160621
  Receipt Date: 20160825
  Transmission Date: 20161109
  Serious: Yes (Other)
  Sender: FDA-Public Use
  Company Number: US-GLAXOSMITHKLINE-US2016GSK087954

PATIENT
  Age: 63 Year
  Sex: Male

DRUGS (5)
  1. TANZEUM [Suspect]
     Active Substance: ALBIGLUTIDE
     Dosage: UNK
     Dates: end: 201607
  2. TOUJEO [Concomitant]
     Active Substance: INSULIN GLARGINE
  3. NOVOLOG [Concomitant]
     Active Substance: INSULIN ASPART
  4. PREDNISONE. [Suspect]
     Active Substance: PREDNISONE
     Indication: RESPIRATORY TRACT INFECTION
     Dosage: UNK
     Dates: start: 201605
  5. TANZEUM [Suspect]
     Active Substance: ALBIGLUTIDE
     Indication: TYPE 2 DIABETES MELLITUS
     Dosage: 50 MG, WE
     Dates: start: 201601

REACTIONS (8)
  - Respiratory tract infection [Recovered/Resolved]
  - Device use error [Unknown]
  - Drug dose omission [Unknown]
  - Blood glucose increased [Recovering/Resolving]
  - Glycosylated haemoglobin increased [Recovering/Resolving]
  - Accidental exposure to product [Unknown]
  - Device leakage [Unknown]
  - Intentional underdose [Unknown]

NARRATIVE: CASE EVENT DATE: 201603
